FAERS Safety Report 6104682-8 (Version None)
Quarter: 2009Q1

REPORT INFORMATION
  Report Type: 
  Country: None (occurrence: None)
  Receive Date: 20090303
  Receipt Date: 20090216
  Transmission Date: 20090719
  Serious: Yes (Hospitalization)
  Sender: FDA-Public Use
  Company Number: GXKR2009US02023

PATIENT
  Age: 42 Year
  Sex: Female

DRUGS (6)
  1. TETRACYCLINE [Suspect]
     Indication: TOOTH EXTRACTION
     Dosage: 250 MG, QID,
  2. PROPOXYPHENE NAPSYLATE (DEXTROPROPOXYPHENE NAPSILATE) TABLET [Concomitant]
  3. ACETAMINOPHEN [Concomitant]
  4. METOPROLOL (METOPROLOL) EXTENDED RELEASE CAPSULES [Concomitant]
  5. HYDROCHLOROTHIAZIDE [Concomitant]
  6. CYPROHEPTADINE HCL [Concomitant]

REACTIONS (4)
  - ABDOMINAL PAIN [None]
  - DIARRHOEA [None]
  - HAEMODIALYSIS [None]
  - RENAL FAILURE CHRONIC [None]
